FAERS Safety Report 22236446 (Version 1)
Quarter: 2023Q2

REPORT INFORMATION
  Report Type: Spontaneous
  Country: US (occurrence: None)
  Receive Date: 20230420
  Receipt Date: 20230420
  Transmission Date: 20230721
  Serious: No
  Sender: FDA-Public Use
  Company Number: US-ROCHE-3034185

PATIENT
  Age: 48 Year
  Sex: Male
  Weight: 86.260 kg

DRUGS (1)
  1. AVASTIN [Suspect]
     Active Substance: BEVACIZUMAB
     Indication: Presumed ocular histoplasmosis syndrome
     Dosage: CURRENTLY USUALLY EVERY 4 TO 6 WEEKS
     Route: 050
     Dates: start: 2004

REACTIONS (2)
  - Off label use [Unknown]
  - No adverse event [Unknown]

NARRATIVE: CASE EVENT DATE: 20080101
